FAERS Safety Report 6044272-9 (Version None)
Quarter: 2009Q1

REPORT INFORMATION
  Report Type: 
  Country: None (occurrence: None)
  Receive Date: 20090114
  Receipt Date: 20090114
  Transmission Date: 20090719
  Serious: Yes (Hospitalization)
  Sender: FDA-Public Use
  Company Number: None

PATIENT
  Age: 71 Year
  Sex: Female
  Weight: 60.7 kg

DRUGS (1)
  1. FOSAMAX [Suspect]
     Dosage: ONCE
     Dates: start: 20081011, end: 20081111

REACTIONS (2)
  - ARTHRALGIA [None]
  - JOINT SWELLING [None]
